FAERS Safety Report 7576242-3 (Version None)
Quarter: 2011Q2

REPORT INFORMATION
  Report Type: 
  Country: None (occurrence: None)
  Receive Date: 20110628
  Receipt Date: 20110607
  Transmission Date: 20111010
  Serious: Yes (Hospitalization, Other)
  Sender: FDA-Public Use
  Company Number: US-BAYER-201037146NA

PATIENT
  Age: 22 Year
  Sex: Female
  Weight: 83.447 kg

DRUGS (4)
  1. YASMIN [Suspect]
     Dosage: UNK
     Route: 048
     Dates: start: 20060701, end: 20070127
  2. AMOXIL [Concomitant]
     Dosage: 875 MG, UNK
     Route: 048
     Dates: start: 20070128
  3. ALBUTEROL SULFATE AUTOHALER [Concomitant]
     Dosage: 17 G, UNK
     Dates: start: 20070128
  4. YASMIN [Suspect]
     Indication: PRODUCT USED FOR UNKNOWN INDICATION
     Dosage: UNK UNK, UNK
     Route: 048
     Dates: start: 20040501, end: 20050701

REACTIONS (7)
  - EMOTIONAL DISTRESS [None]
  - MENTAL DISORDER [None]
  - PULMONARY EMBOLISM [None]
  - CHOLELITHIASIS [None]
  - DEPRESSION [None]
  - ANXIETY [None]
  - PAIN [None]
